FAERS Safety Report 5423843-4 (Version None)
Quarter: 2007Q3

REPORT INFORMATION
  Report Type: 
  Country: None (occurrence: None)
  Receive Date: 20070823
  Receipt Date: 20070822
  Transmission Date: 20080115
  Serious: Yes (Other)
  Sender: FDA-Public Use
  Company Number: US-BRISTOL-MYERS SQUIBB COMPANY-13885199

PATIENT
  Age: 75 Year
  Sex: Female
  Weight: 100 kg

DRUGS (2)
  1. ERBITUX [Suspect]
  2. ACTOS [Concomitant]

REACTIONS (2)
  - DEPRESSED LEVEL OF CONSCIOUSNESS [None]
  - TONGUE EXFOLIATION [None]
